FAERS Safety Report 7431927-4 (Version None)
Quarter: 2011Q2

REPORT INFORMATION
  Report Type: 
  Country: None (occurrence: None)
  Receive Date: 20110422
  Receipt Date: 20110414
  Transmission Date: 20111010
  Serious: Yes (Hospitalization)
  Sender: FDA-Public Use
  Company Number: JP-JNJFOC-20110406781

PATIENT
  Age: 73 Year
  Sex: Female

DRUGS (2)
  1. DOXIL [Suspect]
     Indication: PRODUCT USED FOR UNKNOWN INDICATION
     Route: 042
  2. CARBOPLATIN [Concomitant]
     Route: 041

REACTIONS (1)
  - HYPONATRAEMIA [None]
